FAERS Safety Report 8535041-6 (Version None)
Quarter: 2012Q3

REPORT INFORMATION
  Report Type: 
  Country: None (occurrence: None)
  Receive Date: 20120724
  Receipt Date: 20120719
  Transmission Date: 20120928
  Serious: Yes (Other)
  Sender: FDA-Public Use
  Company Number: US-PFIZER INC-2012175297

PATIENT

DRUGS (2)
  1. COLCHICINE [Suspect]
     Dosage: UNK
  2. NEURONTIN [Suspect]
     Dosage: 300 UNK, UNK

REACTIONS (1)
  - RENAL DISORDER [None]
